FAERS Safety Report 11787050 (Version 1)
Quarter: 2015Q4

REPORT INFORMATION
  Report Type: Spontaneous
  Country: None (occurrence: US)
  Receive Date: 20151130
  Receipt Date: 20151130
  Transmission Date: 20160305
  Serious: No
  Sender: FDA-Public Use
  Company Number: US-FRI-1000072266

PATIENT
  Sex: Male

DRUGS (3)
  1. ARICEPT [Suspect]
     Active Substance: DONEPEZIL HYDROCHLORIDE
  2. EXELON PATCH [Suspect]
     Active Substance: RIVASTIGMINE
  3. NAMENDA [Suspect]
     Active Substance: MEMANTINE HYDROCHLORIDE

REACTIONS (3)
  - Insomnia [Unknown]
  - Weight increased [Unknown]
  - Lethargy [Unknown]
